FAERS Safety Report 8583122 (Version 2)
Quarter: 2014Q1

REPORT INFORMATION
  Report Type: Spontaneous
  Country: US (occurrence: None)
  Receive Date: 20120323
  Receipt Date: 20130305
  Transmission Date: 20141002
  Serious: Yes (Other)
  Sender: FDA-Public Use
  Company Number: 163-21880-11110397

PATIENT
  Age: 85 Year
  Sex: Male
  Weight: 71.67 kg

DRUGS (1)
  1. REVLIMID (LENALIDOMIDE) (5  MILLIGRAM, CAPSULES) [Suspect]
     Indication: MYELODYSPLASTIC SYNDROME
     Dosage: 10 MG, 1 IN 1 D, PO ; 5 MG, 1 IN 1 D, PO
     Route: 048
     Dates: start: 20110729

REACTIONS (7)
  - Kidney infection [None]
  - Thyroid function test abnormal [None]
  - Dry skin [None]
  - Pruritus [None]
  - Back disorder [None]
  - Neuropathy peripheral [None]
  - Osteoarthritis [None]
